FAERS Safety Report 16318795 (Version 1)
Quarter: 2019Q2

REPORT INFORMATION
  Report Type: Report from Study
  Country: CA (occurrence: CA)
  Receive Date: 20190516
  Receipt Date: 20190516
  Transmission Date: 20190711
  Serious: Yes (Other)
  Sender: FDA-Public Use
  Company Number: CA-TEVA-2019-CA-1049190

PATIENT
  Age: 74 Year
  Sex: Female

DRUGS (23)
  1. DIPHENHYDRAMINE. [Concomitant]
     Active Substance: DIPHENHYDRAMINE
     Indication: PREMEDICATION
     Dosage: 50 MG,
     Route: 048
  2. FOLIC ACID. [Concomitant]
     Active Substance: FOLIC ACID
  3. HYDROXYCHLOROQUINE [Concomitant]
     Active Substance: HYDROXYCHLOROQUINE
  4. SOLU-MEDROL [Concomitant]
     Active Substance: METHYLPREDNISOLONE SODIUM SUCCINATE
     Indication: PREMEDICATION
     Dosage: 100 MG,
     Route: 042
  5. SULFASALAZINE. [Concomitant]
     Active Substance: SULFASALAZINE
  6. NAPROSYN [Concomitant]
     Active Substance: NAPROXEN
  7. POLYSACCHARIDE-IRON COMPLEX [Concomitant]
     Active Substance: FERRIC POLYSACCHARIDE COMPLEX
  8. PREGABALIN. [Concomitant]
     Active Substance: PREGABALIN
  9. FUROSEMIDE. [Concomitant]
     Active Substance: FUROSEMIDE
  10. RITUXAN [Suspect]
     Active Substance: RITUXIMAB
     Indication: NEOPLASM MALIGNANT
     Route: 065
  11. AMLODIPINE [Concomitant]
     Active Substance: AMLODIPINE BESYLATE
  12. ESOMEPRAZOLE. [Concomitant]
     Active Substance: ESOMEPRAZOLE MAGNESIUM
  13. PREDNISONE. [Concomitant]
     Active Substance: PREDNISONE
  14. FENTANYL. [Suspect]
     Active Substance: FENTANYL
     Indication: PRODUCT USED FOR UNKNOWN INDICATION
     Route: 065
  15. RITUXAN [Suspect]
     Active Substance: RITUXIMAB
     Indication: RHEUMATOID ARTHRITIS
     Dosage: 1000 MG,
     Route: 042
  16. ORENCIA [Concomitant]
     Active Substance: ABATACEPT
     Route: 042
  17. RABEPRAZOLE [Concomitant]
     Active Substance: RABEPRAZOLE
  18. TYLENOL [Concomitant]
     Active Substance: ACETAMINOPHEN
     Indication: PREMEDICATION
     Dosage: 650 MG,
     Route: 048
  19. ASA [Concomitant]
     Active Substance: ASPIRIN
  20. LEFLUNOMIDE. [Concomitant]
     Active Substance: LEFLUNOMIDE
  21. TYLENOL 8 HR ARTHRITIS PAIN [Concomitant]
     Active Substance: ACETAMINOPHEN
  22. HYDROMORPH CONTIN [Concomitant]
     Active Substance: HYDROMORPHONE
  23. SYNTHROID [Concomitant]
     Active Substance: LEVOTHYROXINE SODIUM

REACTIONS (19)
  - Blood pressure increased [Recovering/Resolving]
  - Blood pressure systolic increased [Recovering/Resolving]
  - Injection site extravasation [Recovering/Resolving]
  - Tachycardia [Recovering/Resolving]
  - Heart rate increased [Recovering/Resolving]
  - Hypotension [Recovering/Resolving]
  - Infusion site extravasation [Recovering/Resolving]
  - Injection site mass [Recovering/Resolving]
  - Contusion [Recovering/Resolving]
  - Rheumatoid arthritis [Recovering/Resolving]
  - Fall [Recovering/Resolving]
  - Mass [Recovering/Resolving]
  - Blood pressure systolic abnormal [Recovering/Resolving]
  - Dizziness [Recovering/Resolving]
  - Ligament sprain [Recovering/Resolving]
  - Oxygen saturation decreased [Recovering/Resolving]
  - Blood pressure fluctuation [Recovering/Resolving]
  - Localised infection [Recovering/Resolving]
  - Off label use [Recovering/Resolving]
